FAERS Safety Report 9688825 (Version 1)
Quarter: 2013Q4

REPORT INFORMATION
  Report Type: Spontaneous
  Country: GB (occurrence: GB)
  Receive Date: 20131114
  Receipt Date: 20131114
  Transmission Date: 20140711
  Serious: Yes (Other)
  Sender: FDA-Public Use
  Company Number: GB-TEVA-442439ISR

PATIENT
  Age: 46 Year
  Sex: Female
  Weight: 85 kg

DRUGS (6)
  1. COPAXONE [Suspect]
     Indication: MULTIPLE SCLEROSIS
     Route: 058
     Dates: start: 20131014, end: 20131019
  2. AMANTADINE [Concomitant]
  3. NORTRIPTYLINE [Concomitant]
  4. VITAMIN B12 [Concomitant]
  5. VITAMIN D [Concomitant]
  6. OMEPRAZOLE [Concomitant]

REACTIONS (5)
  - Injection site movement impairment [Recovered/Resolved]
  - Injection site pain [Recovered/Resolved]
  - Injection site reaction [Unknown]
  - Injection site joint pain [Unknown]
  - Injection site pain [Unknown]
